FAERS Safety Report 5342089-1 (Version None)
Quarter: 2007Q2

REPORT INFORMATION
  Report Type: 
  Country: None (occurrence: None)
  Receive Date: 20070601
  Receipt Date: 20070528
  Transmission Date: 20071010
  Serious: Yes (Hospitalization)
  Sender: FDA-Public Use
  Company Number: FR-ASTRAZENECA-2007CG00830

PATIENT
  Age: 8 Year
  Sex: Male
  Weight: 26 kg

DRUGS (19)
  1. OMEPRAZOLE [Suspect]
     Route: 048
  2. CERUBIDINE [Suspect]
     Indication: T-CELL LYMPHOMA
     Route: 042
     Dates: start: 20070404, end: 20070404
  3. CERUBIDINE [Suspect]
     Route: 042
     Dates: start: 20070411, end: 20070411
  4. CERUBIDINE [Suspect]
     Route: 042
     Dates: start: 20070418, end: 20070418
  5. CERUBIDINE [Suspect]
     Route: 042
     Dates: start: 20070425, end: 20070425
  6. KIDROLASE [Suspect]
     Indication: T-CELL LYMPHOMA
     Route: 042
     Dates: start: 20070407, end: 20070407
  7. KIDROLASE [Suspect]
     Route: 042
     Dates: start: 20070411, end: 20070411
  8. KIDROLASE [Suspect]
     Route: 042
     Dates: start: 20070414, end: 20070414
  9. VINCRISTINE [Suspect]
     Indication: T-CELL LYMPHOMA
     Route: 042
     Dates: start: 20070404, end: 20070404
  10. VINCRISTINE [Suspect]
     Route: 042
     Dates: start: 20070411, end: 20070411
  11. VINCRISTINE [Suspect]
     Route: 042
     Dates: start: 20070418, end: 20070418
  12. VINCRISTINE [Suspect]
     Route: 042
     Dates: start: 20070425, end: 20070425
  13. METHOTREXATE SODIUM [Suspect]
     Indication: T-CELL LYMPHOMA
     Route: 037
     Dates: start: 20070405, end: 20070405
  14. METHOTREXATE SODIUM [Suspect]
     Route: 037
     Dates: start: 20070429, end: 20070429
  15. SOLU-MEDROL [Suspect]
     Route: 042
     Dates: start: 20070404, end: 20070410
  16. SOLUPRED [Suspect]
     Dates: start: 20070411
  17. LOVENOX [Suspect]
  18. STEROGYL [Suspect]
  19. OSTRAM [Suspect]

REACTIONS (2)
  - CARDIAC MURMUR [None]
  - HYPERTROPHIC CARDIOMYOPATHY [None]
